FAERS Safety Report 15370382 (Version 1)
Quarter: 2018Q4

REPORT INFORMATION
  Report Type: Spontaneous
  Country: RO (occurrence: RO)
  Receive Date: 20180911
  Receipt Date: 20180911
  Transmission Date: 20190204
  Serious: Yes (Life-Threatening)
  Sender: FDA-Public Use
  Company Number: RO-GLASSHOUSE PHARMACEUTICALS LIMITED CA-2018GLH00003

PATIENT
  Age: 49 Year
  Sex: Male

DRUGS (2)
  1. CLINDAMYCIN. [Suspect]
     Active Substance: CLINDAMYCIN
     Dosage: 30 MG, ONCE
     Route: 048
  2. CLINDAMYCIN. [Suspect]
     Active Substance: CLINDAMYCIN
     Dosage: 45 MG ONCE
     Route: 048

REACTIONS (1)
  - Anaphylactic reaction [Recovered/Resolved]
